FAERS Safety Report 9422387 (Version 2)
Quarter: 2013Q3

REPORT INFORMATION
  Report Type: Spontaneous
  Country: IT (occurrence: None)
  Receive Date: 20130723
  Receipt Date: 20130726
  Transmission Date: 20140515
  Serious: Yes (Other)
  Sender: FDA-Public Use
  Company Number: 7217310

PATIENT
  Age: 44 Year
  Sex: Female

DRUGS (3)
  1. REBIF [Suspect]
     Indication: MULTIPLE SCLEROSIS
     Dates: start: 201111
  2. EUTIROX [Concomitant]
  3. VITAMIN D /00107901/ (ERGOCALCIFEROL) (ERGOCALCIFEROL) [Concomitant]

REACTIONS (5)
  - Blood thyroid stimulating hormone increased [None]
  - Amenorrhoea [None]
  - Blood follicle stimulating hormone increased [None]
  - Ovarian failure [None]
  - Gastrooesophageal reflux disease [None]
